FAERS Safety Report 9138815 (Version 1)
Quarter: 2013Q1

REPORT INFORMATION
  Report Type: Spontaneous
  Country: US (occurrence: US)
  Receive Date: 20130305
  Receipt Date: 20130305
  Transmission Date: 20140127
  Serious: Yes (Other)
  Sender: FDA-Public Use
  Company Number: US-ENDO PHARMACEUTICALS INC.-PERC20120106

PATIENT
  Sex: Male

DRUGS (3)
  1. PERCOCET [Suspect]
     Indication: INSOMNIA
     Dosage: 25/1625 MG
     Route: 048
  2. ENDOCET [Suspect]
     Indication: INSOMNIA
     Dosage: 25/1625 MG
     Route: 048
  3. LORTAB [Concomitant]
     Indication: INSOMNIA
     Dosage: UNK
     Route: 048

REACTIONS (2)
  - Drug abuse [Unknown]
  - Off label use [Unknown]
